FAERS Safety Report 25111532 (Version 4)
Quarter: 2025Q2

REPORT INFORMATION
  Report Type: Spontaneous
  Country: FR (occurrence: FR)
  Receive Date: 20250324
  Receipt Date: 20250515
  Transmission Date: 20250717
  Serious: Yes (Disabling, Other)
  Sender: CELLTRION
  Company Number: FR-CELLTRION INC.-2025FR008104

PATIENT

DRUGS (14)
  1. INFLIXIMAB [Suspect]
     Active Substance: INFLIXIMAB
     Indication: Crohn^s disease
     Dosage: 1 INJECTION EVERY TWO WEEKS; PENS
     Route: 058
     Dates: start: 202105
  2. INFLIXIMAB [Suspect]
     Active Substance: INFLIXIMAB
     Dosage: 1 INJECTION EVERY TWO WEEKS ON 13 JUN; PENS
     Route: 058
  3. INFLIXIMAB [Suspect]
     Active Substance: INFLIXIMAB
     Dosage: 1 INJECTION EVERY TWO WEEKS ON 27 JUN; PENS
     Route: 058
  4. INFLIXIMAB [Suspect]
     Active Substance: INFLIXIMAB
     Dosage: 1 INJECTION EVERY TWO WEEKS ON 07 SEP; PENS
     Route: 058
  5. INFLIXIMAB [Suspect]
     Active Substance: INFLIXIMAB
     Dosage: 1 INJECTION EVERY TWO WEEKS ON 04 NOV; PENS
     Route: 058
  6. INFLIXIMAB [Suspect]
     Active Substance: INFLIXIMAB
     Dosage: 1 INJECTION EVERY TWO WEEKS ON 20 DEC; PENS
     Route: 058
  7. INFLIXIMAB [Suspect]
     Active Substance: INFLIXIMAB
     Dosage: 1 INJECTION EVERY TWO WEEKS ON 23 JAN; PENS
     Route: 058
  8. INFLIXIMAB [Suspect]
     Active Substance: INFLIXIMAB
     Dosage: 1 INJECTION EVERY TWO WEEKS ON 18 FEB; PENS
     Route: 058
  9. INFLIXIMAB [Suspect]
     Active Substance: INFLIXIMAB
     Dosage: 1 INJECTION EVERY TWO WEEKS
     Route: 058
     Dates: start: 20230303
  10. INFLIXIMAB [Suspect]
     Active Substance: INFLIXIMAB
     Dosage: 1 INJECTION EVERY TWO WEEKS
     Route: 058
     Dates: start: 20240110
  11. INFLIXIMAB [Suspect]
     Active Substance: INFLIXIMAB
     Dosage: 1 INJECTION EVERY TWO WEEKS
     Route: 058
     Dates: start: 20240216
  12. INFLIXIMAB [Suspect]
     Active Substance: INFLIXIMAB
     Dosage: 1 INJECTION EVERY TWO WEEKS
     Route: 058
     Dates: start: 20240319
  13. INFLIXIMAB [Suspect]
     Active Substance: INFLIXIMAB
     Dosage: 1 INJECTION EVERY TWO WEEKS
     Route: 058
     Dates: start: 20240506
  14. INFLIXIMAB [Suspect]
     Active Substance: INFLIXIMAB
     Dosage: 1 INJECTION EVERY TWO WEEKS; SYRINGE
     Route: 058
     Dates: start: 20250311

REACTIONS (7)
  - Injection site pain [Not Recovered/Not Resolved]
  - Blister [Not Recovered/Not Resolved]
  - Headache [Not Recovered/Not Resolved]
  - Pruritus [Not Recovered/Not Resolved]
  - Dizziness [Not Recovered/Not Resolved]
  - Fatigue [Not Recovered/Not Resolved]
  - Fear of injection [Unknown]
